FAERS Safety Report 21439300 (Version 1)
Quarter: 2022Q4

REPORT INFORMATION
  Report Type: Spontaneous
  Country: IT (occurrence: IT)
  Receive Date: 20221011
  Receipt Date: 20221011
  Transmission Date: 20230112
  Serious: Yes (Life-Threatening, Hospitalization)
  Sender: FDA-Public Use
  Company Number: None

PATIENT
  Age: 52 Year
  Sex: Female

DRUGS (2)
  1. LETROZOLE [Suspect]
     Active Substance: LETROZOLE
     Indication: Breast cancer recurrent
     Dosage: 2.5 MG, Q24H (LETROZOLO CP 2.5 MG, 1 CP AL GIORNO)
     Route: 065
     Dates: start: 20220428, end: 20220511
  2. KISQALI [Suspect]
     Active Substance: RIBOCICLIB
     Indication: Breast cancer recurrent
     Dosage: 200 MG, Q8H (RIBOCICLIB CP 200 MG, 3 CP/DIE PER 21 GIORNI)
     Route: 065
     Dates: start: 20220428, end: 20220511

REACTIONS (4)
  - Acute kidney injury [Recovered/Resolved]
  - Hypercalcaemia [Recovered/Resolved]
  - Electrocardiogram abnormal [Recovered/Resolved]
  - Vomiting [Recovered/Resolved]

NARRATIVE: CASE EVENT DATE: 20220511
